FAERS Safety Report 9404710 (Version 2)
Quarter: 2013Q3

REPORT INFORMATION
  Report Type: Report from Study
  Country: MX (occurrence: MX)
  Receive Date: 20130717
  Receipt Date: 20130731
  Transmission Date: 20140515
  Serious: Yes (Other)
  Sender: FDA-Public Use
  Company Number: PHHY2013MX075461

PATIENT
  Age: 70 Year
  Sex: Female

DRUGS (6)
  1. DIOVAN [Suspect]
     Indication: HYPERTENSION
     Dosage: 2 DF(80 MG), DAILY
     Route: 048
     Dates: start: 201109, end: 201204
  2. CARBAMAZEPINE [Concomitant]
     Indication: NEUROPATHY PERIPHERAL
     Dosage: 1.5 DF, DAILY
     Dates: start: 1997
  3. LOSEC//OMEPRAZOLE [Concomitant]
     Indication: GASTROINTESTINAL DISORDER
     Dosage: 2 UKN, DAILY
     Dates: start: 2004
  4. VENALOT DEPOT [Concomitant]
     Indication: VENOUS INSUFFICIENCY
     Dosage: 2 UKN, DAILY
     Dates: start: 2007
  5. ASPIRINE PROTECT [Concomitant]
     Indication: ANTICOAGULANT THERAPY
     Dosage: 1 UKN, DAILY
     Dates: start: 2000
  6. VERAPAMIL [Concomitant]
     Indication: BLOOD PRESSURE ABNORMAL
     Dosage: 2 UKN, DAILY
     Dates: start: 2011

REACTIONS (4)
  - Fibromyalgia [Unknown]
  - Hypertension [Unknown]
  - Emotional disorder [Not Recovered/Not Resolved]
  - Drug ineffective [Not Recovered/Not Resolved]
